FAERS Safety Report 16361751 (Version 1)
Quarter: 2019Q2

REPORT INFORMATION
  Report Type: Spontaneous
  Country: CN (occurrence: CN)
  Receive Date: 20190528
  Receipt Date: 20190528
  Transmission Date: 20190711
  Serious: Yes (Other)
  Sender: FDA-Public Use
  Company Number: CN-BAYER-2019-097055

PATIENT
  Age: 74 Year
  Sex: Male

DRUGS (2)
  1. AVELOX [Suspect]
     Active Substance: MOXIFLOXACIN HYDROCHLORIDE
     Indication: PNEUMONIA
     Dosage: 400 MG, QD
     Route: 041
     Dates: start: 20190505, end: 20190505
  2. LYSINE ACETYLSALICYLATE [Suspect]
     Active Substance: ASPIRIN DL-LYSINE
     Dosage: 1 DF, QD
     Route: 042
     Dates: start: 20190505, end: 20190505

REACTIONS (6)
  - Flushing [Recovering/Resolving]
  - Nasal obstruction [Recovering/Resolving]
  - Hypersensitivity [Recovering/Resolving]
  - Oropharyngeal discomfort [Recovering/Resolving]
  - Myocardial ischaemia [Recovering/Resolving]
  - Sinus tachycardia [Recovering/Resolving]

NARRATIVE: CASE EVENT DATE: 20190505
